FAERS Safety Report 15320419 (Version 1)
Quarter: 2018Q3

REPORT INFORMATION
  Report Type: Spontaneous
  Country: AU (occurrence: AU)
  Receive Date: 20180821
  Receipt Date: 20180821
  Transmission Date: 20181010
  Serious: Yes (Life-Threatening, Hospitalization, Disabling, Other)
  Sender: FDA-Public Use
  Company Number: None

PATIENT
  Age: 71 Year
  Sex: Male
  Weight: 90 kg

DRUGS (8)
  1. XOFIGO [Suspect]
     Active Substance: RADIUM RA-223 DICHLORIDE
     Indication: HORMONE-REFRACTORY PROSTATE CANCER
     Dosage: ?          QUANTITY:1 INJECTION(S);OTHER FREQUENCY:1 DOSE EVERY 4 WEE;?
     Route: 042
     Dates: start: 20150604, end: 20150910
  2. ABIRATERONE [Concomitant]
     Active Substance: ABIRATERONE
  3. PREDNISOLONE. [Concomitant]
     Active Substance: PREDNISOLONE
  4. ZOLADEX [Concomitant]
     Active Substance: GOSERELIN ACETATE
  5. DENOSUMAB/XGEVA [Concomitant]
  6. CHEMO [Concomitant]
     Active Substance: UNSPECIFIED INGREDIENT
  7. ASPIRIN. [Concomitant]
     Active Substance: ASPIRIN
  8. CLOPIDOGREL [Concomitant]
     Active Substance: CLOPIDOGREL BISULFATE

REACTIONS (2)
  - Haemoglobin decreased [None]
  - Pancytopenia [None]

NARRATIVE: CASE EVENT DATE: 20150729
